FAERS Safety Report 23312254 (Version 1)
Quarter: 2023Q4

REPORT INFORMATION
  Report Type: Spontaneous
  Country: US (occurrence: US)
  Receive Date: 20231219
  Receipt Date: 20231219
  Transmission Date: 20240110
  Serious: No
  Sender: FDA-Public Use
  Company Number: US-ABBVIE-5542252

PATIENT
  Sex: Female

DRUGS (3)
  1. RESTASIS [Suspect]
     Active Substance: CYCLOSPORINE
     Indication: Product used for unknown indication
     Route: 047
  2. XIIDRA [Concomitant]
     Active Substance: LIFITEGRAST
     Indication: Product used for unknown indication
  3. SEQUA [Concomitant]
     Indication: Product used for unknown indication

REACTIONS (4)
  - Insomnia [Unknown]
  - Drug ineffective [Unknown]
  - Craniocerebral injury [Unknown]
  - Dry eye [Unknown]
